FAERS Safety Report 6082498-9 (Version None)
Quarter: 2009Q1

REPORT INFORMATION
  Report Type: 
  Country: None (occurrence: None)
  Receive Date: 20090218
  Receipt Date: 20090212
  Transmission Date: 20090719
  Serious: Yes (Death, Disabling)
  Sender: FDA-Public Use
  Company Number: JP-AVENTIS-200413664JP

PATIENT
  Age: 86 Year
  Sex: Male
  Weight: 38.9 kg

DRUGS (4)
  1. AMARYL [Suspect]
     Indication: DIABETES MELLITUS
     Route: 048
     Dates: end: 20040428
  2. AMLODIN [Concomitant]
     Indication: HYPERTENSION
     Route: 048
     Dates: end: 20040428
  3. LASIX [Concomitant]
     Route: 048
     Dates: end: 20040428
  4. NITOROL [Concomitant]
     Route: 048
     Dates: end: 20040428

REACTIONS (1)
  - HYPOGLYCAEMIC COMA [None]
